FAERS Safety Report 9936958 (Version 1)
Quarter: 2014Q1

REPORT INFORMATION
  Report Type: Spontaneous
  Country: US (occurrence: None)
  Receive Date: 20140115
  Receipt Date: 20140115
  Transmission Date: 20141002
  Serious: No
  Sender: FDA-Public Use
  Company Number: 2013US002596

PATIENT
  Age: 61 Year
  Sex: Female
  Weight: 52 kg

DRUGS (10)
  1. ICLUSIG [Suspect]
     Indication: CHRONIC MYELOID LEUKAEMIA
     Route: 048
     Dates: start: 20130223
  2. MULTIVITAMIN (VITAMINS NOS) [Concomitant]
  3. TRAZODONE (TRAZODONE) [Concomitant]
  4. HYDROCODONE (HYDROCODONE) [Concomitant]
  5. VITAMIN D (VITAMIN D NOS) [Concomitant]
  6. VITAMIN C (VITAMIN C) [Concomitant]
  7. VITAMIN E (VITAMIN E) [Concomitant]
  8. VITAMIN B12 (VITAMIN B12) [Concomitant]
  9. B COMPLEX (VITAMIN B COMPLEX) [Concomitant]
  10. ZOLOFT (SERTRALINE HYDROCHLORIDE) [Concomitant]

REACTIONS (2)
  - Depression [None]
  - Fatigue [None]
